FAERS Safety Report 5790156-0 (Version None)
Quarter: 2008Q2

REPORT INFORMATION
  Report Type: 
  Country: None (occurrence: None)
  Receive Date: 20080618
  Receipt Date: 20080201
  Transmission Date: 20081010
  Serious: Yes (Other)
  Sender: FDA-Public Use
  Company Number: 200810689US

PATIENT
  Age: 64 Year
  Sex: Male

DRUGS (7)
  1. LANTUS [Suspect]
     Indication: TYPE 2 DIABETES MELLITUS
     Dosage: 50 U QD INJ
  2. ASPIRIN [Concomitant]
  3. NOVOLOG [Concomitant]
  4. PRINIVIL [Concomitant]
  5. AVANDIA [Concomitant]
  6. SIMVASTATIN, EZETIMIBE (VYTORIN) [Concomitant]
  7. BETA-BLOCKERS NOS [Concomitant]

REACTIONS (5)
  - BLOOD GLUCOSE INCREASED [None]
  - FEELING ABNORMAL [None]
  - HYPERHIDROSIS [None]
  - HYPOGLYCAEMIA [None]
  - VISION BLURRED [None]
